FAERS Safety Report 21447001 (Version 1)
Quarter: 2022Q4

REPORT INFORMATION
  Report Type: Spontaneous
  Country: US (occurrence: None)
  Receive Date: 20221011
  Receipt Date: 20221011
  Transmission Date: 20230113
  Serious: Yes (Other)
  Sender: FDA-Public Use
  Company Number: None

PATIENT
  Age: 41 Year
  Sex: Female
  Weight: 108.41 kg

DRUGS (1)
  1. CONCERTA [Suspect]
     Active Substance: METHYLPHENIDATE HYDROCHLORIDE
     Dates: start: 20201116, end: 20210109

REACTIONS (5)
  - Product substitution issue [None]
  - Therapeutic response changed [None]
  - Anxiety [None]
  - Attention deficit hyperactivity disorder [None]
  - Symptom recurrence [None]

NARRATIVE: CASE EVENT DATE: 20201116
